FAERS Safety Report 9693289 (Version 1)
Quarter: 2013Q4

REPORT INFORMATION
  Report Type: Spontaneous
  Country: US (occurrence: US)
  Receive Date: 20131118
  Receipt Date: 20131118
  Transmission Date: 20140711
  Serious: No
  Sender: FDA-Public Use
  Company Number: US-009507513-1311USA003838

PATIENT
  Sex: Female

DRUGS (1)
  1. LOTRIMIN ULTRA [Suspect]
     Indication: RASH
     Dosage: UNK, UNKNOWN
     Route: 061

REACTIONS (4)
  - Hypersensitivity [Unknown]
  - Hypoaesthesia oral [Unknown]
  - Breast pain [Not Recovered/Not Resolved]
  - Off label use [Unknown]
